FAERS Safety Report 7686008-1 (Version None)
Quarter: 2011Q3

REPORT INFORMATION
  Report Type: 
  Country: None (occurrence: None)
  Receive Date: 20110816
  Receipt Date: 20110804
  Transmission Date: 20111222
  Serious: Yes (Hospitalization, Other)
  Sender: FDA-Public Use
  Company Number: PHHY2011AU63207

PATIENT
  Sex: Female

DRUGS (24)
  1. FEMARA [Suspect]
     Indication: BREAST CANCER
     Dosage: 2.5 MG ONE DAILY
     Route: 048
     Dates: start: 20101101
  2. ZOMETA [Suspect]
     Dosage: ONCE YEARLY
     Dates: start: 20100501
  3. FELODIPINE [Concomitant]
     Dosage: 1 DF, DAILY
     Route: 048
  4. PREDNISOLONE [Concomitant]
     Dosage: 3 MANE
     Route: 048
  5. PANAMAX [Concomitant]
     Dosage: 2 DF, QID
     Route: 048
  6. PLAQUENIL [Concomitant]
     Dosage: 1 DF, BID
  7. FLUVAX [Concomitant]
     Dosage: UNK UKN, UNK
     Dates: start: 20090406
  8. ZOMETA [Suspect]
     Dosage: UNK UKN, UNK
     Dates: start: 20110501
  9. AKAMIN [Concomitant]
     Dosage: 1 DF, BID
     Route: 048
  10. GENTEAL                            /00445101/ [Concomitant]
     Dosage: 1-2 DROPS PRN
  11. TEMAZEPAM [Concomitant]
     Dosage: 1-2 NOCTE HALF AN HOUR BEFORE BED
     Route: 048
  12. ATACAND [Concomitant]
     Dosage: 16 MG/ 12.5 MG
     Route: 048
  13. GENTEAL GEL [Concomitant]
     Dosage: UNK UKN, UNK
  14. VENTOLIN [Concomitant]
     Dosage: UNK UKN, BID
  15. ADCAL [Concomitant]
     Dosage: UNK UKN, UNK
     Dates: start: 20110304
  16. ACIMAX [Concomitant]
     Dosage: 1 DF, DAILY
     Route: 048
  17. CALCIA [Concomitant]
     Dosage: 2 DF, DAILY
     Route: 048
  18. IMODIUM [Concomitant]
     Dosage: 8 DF, DAILY
     Route: 048
  19. SERETIDE EVOHALER [Concomitant]
     Dosage: 1 DF
  20. VAXIGRIP [Concomitant]
     Dosage: UNK UKN, UNK
     Dates: start: 20080313
  21. FLUVAX [Concomitant]
     Dosage: UNK UKN, UNK
     Dates: start: 20100331
  22. FLUVAX [Concomitant]
     Dosage: UNK UKN, UNK
     Dates: end: 20110429
  23. ASPIRIN [Concomitant]
     Dosage: 100 MG, QD
  24. OSTELIN [Concomitant]
     Dosage: 2 DF, DAILY
     Route: 048

REACTIONS (17)
  - OSTEOPENIA [None]
  - VITAMIN D DECREASED [None]
  - SYNCOPE [None]
  - LOSS OF CONSCIOUSNESS [None]
  - DEHYDRATION [None]
  - ORTHOSTATIC HYPOTENSION [None]
  - PERIPHERAL VASCULAR DISORDER [None]
  - HERPES ZOSTER [None]
  - BONE DISORDER [None]
  - BLOOD PARATHYROID HORMONE INCREASED [None]
  - RED BLOOD CELL SEDIMENTATION RATE ABNORMAL [None]
  - ATRIAL TACHYCARDIA [None]
  - HYPERTENSION [None]
  - SJOGREN'S SYNDROME [None]
  - SYSTEMIC LUPUS ERYTHEMATOSUS [None]
  - HYPOTENSION [None]
  - DYSLIPIDAEMIA [None]
